FAERS Safety Report 9285601 (Version 1)
Quarter: 2013Q2

REPORT INFORMATION
  Report Type: Spontaneous
  Country: IN (occurrence: IN)
  Receive Date: 20130513
  Receipt Date: 20130513
  Transmission Date: 20140414
  Serious: Yes (Other)
  Sender: FDA-Public Use
  Company Number: IN-JNJFOC-20130500470

PATIENT
  Sex: 0

DRUGS (3)
  1. DOXORUBICIN HYDROCHLORIDE [Suspect]
     Indication: NEPHROBLASTOMA
     Route: 042
  2. ACTINOMYCIN D [Suspect]
     Indication: NEPHROBLASTOMA
     Route: 065
  3. VINCRISTINE [Suspect]
     Indication: NEPHROBLASTOMA
     Route: 065

REACTIONS (3)
  - Oncologic complication [Unknown]
  - Nephroblastoma [Unknown]
  - Off label use [Unknown]
